FAERS Safety Report 24601384 (Version 1)
Quarter: 2024Q4

REPORT INFORMATION
  Report Type: Spontaneous
  Country: US (occurrence: US)
  Receive Date: 20241111
  Receipt Date: 20241111
  Transmission Date: 20250115
  Serious: No
  Sender: ROCHE
  Company Number: US-ROCHE-10000122915

PATIENT
  Sex: Male

DRUGS (13)
  1. ACTEMRA [Suspect]
     Active Substance: TOCILIZUMAB
     Indication: Idiopathic pulmonary fibrosis
     Dosage: 162 MG/ 0.9 ML (FREQUENCY-NEVER FILL)
     Route: 065
  2. RANOLAZINE E TB1 1000MG [Concomitant]
  3. PREDNISONE [Concomitant]
     Active Substance: PREDNISONE
  4. FAMOTIDINE [Concomitant]
     Active Substance: FAMOTIDINE
  5. CO-ENZYME [Concomitant]
  6. ELIQUIS [Concomitant]
     Active Substance: APIXABAN
  7. LORATADINE-D [Concomitant]
     Dosage: TB2 10-240MG
  8. LYSINE HCL [Concomitant]
  9. MAGNESIUM [Concomitant]
     Active Substance: MAGNESIUM
  10. METOPROLOL [Concomitant]
     Active Substance: METOPROLOL
  11. PROBIATA [Concomitant]
  12. ROSUVASTATIN [Concomitant]
     Active Substance: ROSUVASTATIN
  13. VITAMIN C [Concomitant]
     Active Substance: ASCORBIC ACID
     Dosage: POW

REACTIONS (2)
  - Rheumatoid arthritis [Unknown]
  - Therapeutic product effect incomplete [Unknown]
